FAERS Safety Report 8153572-8 (Version None)
Quarter: 2012Q1

REPORT INFORMATION
  Report Type: 
  Country: None (occurrence: None)
  Receive Date: 20120103
  Receipt Date: 20110830
  Transmission Date: 20120608
  Serious: No
  Sender: FDA-Public Use
  Company Number: AE-2011-001043

PATIENT
  Age: 43 Year
  Sex: Female
  Weight: 91.6266 kg

DRUGS (7)
  1. PEGASUS (PEGINTERFERON ALFA-2A) [Concomitant]
  2. LEVOTHYROXINE SODIUM [Concomitant]
  3. LACTULOSE [Concomitant]
  4. INCIVEK [Suspect]
     Dosage: 2250 MG (750 MG,1 IN 8 HR),ORAL
     Route: 048
     Dates: start: 20110819
  5. RIBAVIRIN [Concomitant]
  6. OXYCODONE HCL [Concomitant]
  7. PREVACID [Concomitant]

REACTIONS (3)
  - NAUSEA [None]
  - RASH PAPULAR [None]
  - VULVOVAGINAL PRURITUS [None]
